FAERS Safety Report 7743808-7 (Version None)
Quarter: 2011Q3

REPORT INFORMATION
  Report Type: 
  Country: None (occurrence: None)
  Receive Date: 20110912
  Receipt Date: 20110830
  Transmission Date: 20111222
  Serious: Yes (Hospitalization)
  Sender: FDA-Public Use
  Company Number: US-GLAXOSMITHKLINE-A0890371A

PATIENT
  Sex: Male
  Weight: 109.1 kg

DRUGS (4)
  1. AVANDIA [Suspect]
     Indication: DIABETES MELLITUS
     Dosage: 4MG PER DAY
     Route: 048
     Dates: start: 20020101, end: 20070101
  2. LISINOPRIL [Concomitant]
  3. ATENOLOL [Concomitant]
  4. TENORMIN [Concomitant]

REACTIONS (5)
  - ATRIOVENTRICULAR BLOCK COMPLETE [None]
  - CARDIOVASCULAR DISORDER [None]
  - ARRHYTHMIA [None]
  - CARDIAC FAILURE CONGESTIVE [None]
  - CARDIOMYOPATHY [None]
